FAERS Safety Report 24119062 (Version 1)
Quarter: 2024Q3

REPORT INFORMATION
  Report Type: Other
  Country: GB (occurrence: GB)
  Receive Date: 20240722
  Receipt Date: 20240722
  Transmission Date: 20241017
  Serious: Yes (Other)
  Sender: LUPIN
  Company Number: None

PATIENT

DRUGS (1)
  1. SERTRALINE [Suspect]
     Active Substance: SERTRALINE HYDROCHLORIDE
     Indication: Anxiety
     Dosage: UNK (IN MORNING, 2 DAYS 12.5 MG AND 2 DAYS 25 MG DOSE)
     Route: 065
     Dates: start: 20240510

REACTIONS (1)
  - Formication [Not Recovered/Not Resolved]

NARRATIVE: CASE EVENT DATE: 20240513
